FAERS Safety Report 24624179 (Version 1)
Quarter: 2024Q4

REPORT INFORMATION
  Report Type: Spontaneous
  Country: IT (occurrence: IT)
  Receive Date: 20241115
  Receipt Date: 20241115
  Transmission Date: 20250115
  Serious: Yes (Hospitalization)
  Sender: PFIZER
  Company Number: IT-002147023-NVSC2024IT212145

PATIENT
  Age: 39 Year
  Sex: Male

DRUGS (7)
  1. DAUNORUBICIN HYDROCHLORIDE [Suspect]
     Active Substance: DAUNORUBICIN HYDROCHLORIDE
     Dosage: 60 MG/MQ FOR 3 DAYS (TOTAL DOSE 360 MG)
  2. CYTARABINE [Suspect]
     Active Substance: CYTARABINE
     Dosage: 200 MG/MQ FOR 7 DAYS (TOTAL DOSE 2800 MG)
     Route: 065
  3. CYTARABINE [Suspect]
     Active Substance: CYTARABINE
     Dosage: 3000 MG/MQ BID [TWICE PER DAY] X 4 DAYS, TOTAL DOSE 48000 MG
     Route: 065
  4. MIDOSTAURIN [Suspect]
     Active Substance: MIDOSTAURIN
     Dosage: 50 MG, BID, FROM DAY +8 TO DAY +21
     Route: 048
     Dates: start: 202111
  5. LEVOFLOXACINA [LEVOFLOXACIN] [Concomitant]
     Indication: Antibiotic prophylaxis
     Dosage: UNK
  6. POSACONAZOLE [Concomitant]
     Active Substance: POSACONAZOLE
     Indication: Antifungal prophylaxis
     Dosage: UNK
  7. CASPOFUNGINA [CASPOFUNGIN] [Concomitant]
     Indication: Antifungal prophylaxis
     Dosage: UNK

REACTIONS (4)
  - Pharyngitis bacterial [Unknown]
  - Mucosal inflammation [Unknown]
  - Tonsillar inflammation [Unknown]
  - Herpes simplex [Unknown]
